FAERS Safety Report 20804661 (Version 2)
Quarter: 2022Q2

REPORT INFORMATION
  Report Type: Spontaneous
  Country: US (occurrence: US)
  Receive Date: 20220509
  Receipt Date: 20220516
  Transmission Date: 20220721
  Serious: Yes (Hospitalization)
  Sender: FDA-Public Use
  Company Number: US-PFIZER INC-202200669255

PATIENT
  Age: 64 Year
  Sex: Female
  Weight: 53.07 kg

DRUGS (6)
  1. VYNDAMAX [Suspect]
     Active Substance: TAFAMIDIS
     Indication: Amyloidosis
     Dosage: 61 MG, DAILY
  2. DIGOXIN [Suspect]
     Active Substance: DIGOXIN
     Indication: Heart rate abnormal
     Dosage: 0.125 MG, 1X/DAY
  3. LISINOPRIL [Concomitant]
     Active Substance: LISINOPRIL
     Indication: Hypertension
     Dosage: 20 MG, 1X/DAY
  4. FLECAINIDE [Concomitant]
     Active Substance: FLECAINIDE
     Dosage: (50MG, TWO EVERY 12 HOURS)
  5. METOPROLOL [Concomitant]
     Active Substance: METOPROLOL
     Indication: Blood pressure abnormal
     Dosage: 200 MG, 1X/DAY
  6. METOPROLOL [Concomitant]
     Active Substance: METOPROLOL
     Indication: Heart rate abnormal

REACTIONS (4)
  - Atrial fibrillation [Unknown]
  - Tachycardia [Unknown]
  - Somnolence [Unknown]
  - Weight decreased [Unknown]
